FAERS Safety Report 13189539 (Version 2)
Quarter: 2017Q2

REPORT INFORMATION
  Report Type: Spontaneous
  Country: FR (occurrence: FR)
  Receive Date: 20170206
  Receipt Date: 20170428
  Transmission Date: 20170830
  Serious: Yes (Hospitalization)
  Sender: FDA-Public Use
  Company Number: FR-PFIZER INC-2017041530

PATIENT
  Age: 70 Year
  Sex: Male

DRUGS (5)
  1. VFEND [Suspect]
     Active Substance: VORICONAZOLE
     Dosage: 500 MG, 2X/DAY
     Dates: end: 201502
  2. IMPAVIDO [Suspect]
     Active Substance: MILTEFOSINE
     Dosage: 50 MG, 3X/DAY
     Route: 048
     Dates: start: 20140818, end: 201502
  3. VFEND [Suspect]
     Active Substance: VORICONAZOLE
     Dosage: 400 MG, 2X/DAY
  4. LAMISIL [Suspect]
     Active Substance: TERBINAFINE HYDROCHLORIDE
     Indication: INFECTION
     Dosage: 500 MG, 2X/DAY
     Route: 048
     Dates: start: 20140418, end: 201502
  5. VFEND [Suspect]
     Active Substance: VORICONAZOLE
     Indication: INFECTION
     Dosage: 200 MG, 2X/DAY
     Route: 042
     Dates: start: 20140418

REACTIONS (2)
  - Macular oedema [Recovered/Resolved]
  - Visual acuity reduced [Recovered/Resolved]

NARRATIVE: CASE EVENT DATE: 20140929
